FAERS Safety Report 7425533-5 (Version None)
Quarter: 2011Q2

REPORT INFORMATION
  Report Type: 
  Country: None (occurrence: None)
  Receive Date: 20110412
  Receipt Date: 20110328
  Transmission Date: 20111010
  Serious: Yes (Death, Hospitalization)
  Sender: FDA-Public Use
  Company Number: 1000019810

PATIENT
  Sex: Female

DRUGS (11)
  1. LAGORAN (ISOSORBTDE DINITRATE) (ISOSORBIDE DINITRATE) [Concomitant]
  2. EXELON [Suspect]
     Dosage: (1 IN 1 D) ,TRANSDERMAL
     Route: 062
     Dates: start: 20110121
  3. EXELON [Suspect]
     Dosage: (1 IN 1 D) ,TRANSDERMAL
     Route: 062
     Dates: end: 20110104
  4. ESCITALOPRAM OXALATE [Suspect]
     Dosage: 15 MG (15 MG,1 IN 1 D),ORAL, ORAL
     Route: 048
     Dates: end: 20110114
  5. ESCITALOPRAM OXALATE [Suspect]
     Dosage: 15 MG (15 MG,1 IN 1 D),ORAL, ORAL
     Route: 048
     Dates: start: 20110121
  6. AUGMENTIN (AMOXICILLIN SODIUM, CLAVULANATE POTASSIUM) [Suspect]
     Indication: LUNG DISORDER
     Dosage: 2 GRAM (2 GM,I IN 1 D), ORAL
     Route: 048
     Dates: start: 20110110, end: 20110114
  7. ALLOPURINOL [Suspect]
     Dates: end: 20110114
  8. OMEPRAZOLE [Suspect]
     Dosage: (1 IN 1 D)
     Dates: end: 20110114
  9. MEMANTINE [Suspect]
     Indication: DEMENTIA ALZHEIMER'S TYPE
     Dosage: 20 MG (20 MG, 1 IN 1 D).ORAL
     Route: 048
     Dates: end: 20110114
  10. MEMANTINE [Suspect]
     Indication: DEMENTIA ALZHEIMER'S TYPE
     Dosage: 20 MG (20 MG, 1 IN 1 D).ORAL
     Route: 048
     Dates: start: 20110121
  11. SIMVASTATIN [Suspect]
     Dates: end: 20110114

REACTIONS (13)
  - LEUKOCYTOSIS [None]
  - THROMBOCYTOPENIA [None]
  - LUNG DISORDER [None]
  - HYPERNATRAEMIA [None]
  - C-REACTIVE PROTEIN INCREASED [None]
  - PULMONARY EMBOLISM [None]
  - ATRIAL FIBRILLATION [None]
  - DECREASED APPETITE [None]
  - CONFUSIONAL STATE [None]
  - DEHYDRATION [None]
  - AGITATION [None]
  - DIET REFUSAL [None]
  - CYTOLYTIC HEPATITIS [None]
